FAERS Safety Report 14101282 (Version 1)
Quarter: 2017Q4

REPORT INFORMATION
  Report Type: Spontaneous
  Country: US (occurrence: None)
  Receive Date: 20171017
  Receipt Date: 20171017
  Transmission Date: 20180321
  Serious: Yes (Death)
  Sender: FDA-Public Use
  Company Number: None

PATIENT
  Age: 45 Year
  Sex: Female

DRUGS (4)
  1. ABRAXANE [Suspect]
     Active Substance: PACLITAXEL
     Indication: COLON CANCER
     Route: 042
     Dates: start: 20170914
  2. PENICILLIN [Concomitant]
     Active Substance: PENICILLIN
  3. DOXORUBIN /2MG/ML [Suspect]
     Active Substance: DOXORUBICIN
     Route: 042
     Dates: start: 20170914
  4. OXYCODONE [Concomitant]
     Active Substance: OXYCODONE

REACTIONS (1)
  - Death [None]

NARRATIVE: CASE EVENT DATE: 20170930
